FAERS Safety Report 17106042 (Version 1)
Quarter: 2019Q4

REPORT INFORMATION
  Report Type: Spontaneous
  Country: US (occurrence: US)
  Receive Date: 20191203
  Receipt Date: 20191203
  Transmission Date: 20200122
  Serious: Yes (Other)
  Sender: FDA-Public Use
  Company Number: US-SA-2019SA328258

PATIENT
  Age: 63 Year
  Sex: Male

DRUGS (11)
  1. VALGANCICLOVIR. [Concomitant]
     Active Substance: VALGANCICLOVIR
     Indication: NEPHROTIC SYNDROME
     Dosage: 900 MG
     Dates: start: 201803
  2. MYFORTIC [Suspect]
     Active Substance: MYCOPHENOLATE SODIUM
     Indication: IMMUNOSUPPRESSION
     Dosage: 360 MG, BID
     Dates: start: 2017
  3. SULFAMETHOXAZOLE AND TRIMETHOPRIM [Concomitant]
     Active Substance: SULFAMETHOXAZOLE\TRIMETHOPRIM
     Indication: ANTIVIRAL PROPHYLAXIS
     Dosage: 160 MG/800 MG NIGHTLY FOR 6 MONTHS AFTER TRANSPLANTATION
     Dates: start: 2017
  4. VALGANCICLOVIR. [Concomitant]
     Active Substance: VALGANCICLOVIR
     Indication: ANTIVIRAL PROPHYLAXIS
     Dosage: 450 MG, QD
     Route: 048
     Dates: start: 2017
  5. VALGANCICLOVIR. [Concomitant]
     Active Substance: VALGANCICLOVIR
     Indication: CHRONIC ALLOGRAFT NEPHROPATHY
     Dosage: 900 MG, BID
     Route: 048
     Dates: start: 201801
  6. PROGRAF [Suspect]
     Active Substance: TACROLIMUS
     Dosage: TROUGH LEVEL OF 7-9 NG/ML IN THE FOLLOWING THREE MONTHS
     Dates: start: 2018
  7. THYMOGLOBULIN [Suspect]
     Active Substance: LAPINE T-LYMPHOCYTE IMMUNE GLOBULIN
     Indication: IMMUNOSUPPRESSION
     Dosage: 6 MG/KG
     Dates: start: 2017
  8. PREDNISONE. [Suspect]
     Active Substance: PREDNISONE
     Indication: IMMUNOSUPPRESSION
     Dosage: 5 MG, QD (POST-OPERATIVE DAY FIVE)
     Route: 048
     Dates: start: 2017
  9. PROGRAF [Suspect]
     Active Substance: TACROLIMUS
     Indication: IMMUNOSUPPRESSION
     Dosage: A12-HOUR TROUGH LEVEL OF 8-10 NG/ML FOR THE FIRST THREE MONTHS
     Dates: start: 2017
  10. PROGRAF [Suspect]
     Active Substance: TACROLIMUS
     Dosage: TROUGH LEVEL OF 7-9 NG/ML IN THE FOLLOWING THREE MONTHS
     Dates: start: 2018
  11. METHYLPREDNISOLONE. [Suspect]
     Active Substance: METHYLPREDNISOLONE
     Indication: IMMUNOSUPPRESSION
     Dosage: UNK
     Route: 042
     Dates: start: 2017

REACTIONS (5)
  - Proteinuria [Recovering/Resolving]
  - New onset diabetes after transplantation [Unknown]
  - Cytomegalovirus viraemia [Recovering/Resolving]
  - Glomerulonephritis [Recovering/Resolving]
  - Nephrotic syndrome [Recovering/Resolving]

NARRATIVE: CASE EVENT DATE: 2018
